FAERS Safety Report 8052357-0 (Version None)
Quarter: 2012Q1

REPORT INFORMATION
  Report Type: 
  Country: None (occurrence: None)
  Receive Date: 20120118
  Receipt Date: 20120109
  Transmission Date: 20120608
  Serious: Yes (Hospitalization)
  Sender: FDA-Public Use
  Company Number: US-BAYER-2011-038803

PATIENT
  Age: 39 Year
  Sex: Female
  Weight: 104.31 kg

DRUGS (6)
  1. VERAPAMIL [Concomitant]
     Indication: BLOOD PRESSURE ABNORMAL
     Dosage: UNK
     Dates: start: 19800101, end: 20020101
  2. YASMIN [Suspect]
     Dosage: UNK
     Dates: start: 20011101, end: 20020701
  3. METROGEL [Concomitant]
     Dosage: UNK
     Dates: start: 20020924
  4. NEOCON [Concomitant]
  5. VERAPAMIL [Concomitant]
     Dosage: UNK
     Dates: start: 19860101, end: 20020101
  6. ECHINACEA [Concomitant]
     Indication: IMMUNE SYSTEM DISORDER
     Dosage: UNK
     Dates: start: 19980101, end: 20020101

REACTIONS (8)
  - DEEP VEIN THROMBOSIS [None]
  - ANHEDONIA [None]
  - PAIN [None]
  - ANXIETY [None]
  - QUALITY OF LIFE DECREASED [None]
  - INJURY [None]
  - FEAR [None]
  - PULMONARY EMBOLISM [None]
